FAERS Safety Report 24332430 (Version 1)
Quarter: 2024Q3

REPORT INFORMATION
  Report Type: Report from Study
  Country: ZA (occurrence: ZA)
  Receive Date: 20240918
  Receipt Date: 20240918
  Transmission Date: 20241016
  Serious: Yes (Death)
  Sender: ABBVIE
  Company Number: ZA-ABBOTT-2024A-1387973

PATIENT
  Age: 69 Year
  Sex: Female

DRUGS (30)
  1. CREON [Suspect]
     Active Substance: PANCRELIPASE AMYLASE\PANCRELIPASE LIPASE\PANCRELIPASE PROTEASE
     Indication: Pancreatic failure
     Dosage: 300 MG TAKE ONE CAPSULE THREE TIMES A DAY WITH MEALS?25000
     Route: 048
  2. ZOLPIDEM TARTRATE [Concomitant]
     Active Substance: ZOLPIDEM TARTRATE
     Indication: Insomnia
     Dosage: 12.5 MG TAKE ONE TABLET IN THE EVENING AT BEDTIME?MR
     Route: 048
  3. LOPERAMIDE [Concomitant]
     Active Substance: LOPERAMIDE
     Indication: Product used for unknown indication
     Dosage: 2 MG AS ?PRESCRIBED
     Route: 048
  4. ACETAMINOPHEN [Concomitant]
     Active Substance: ACETAMINOPHEN
     Indication: Product used for unknown indication
     Dosage: 500 MG AS PRESCRIBED
     Route: 048
  5. PREMARIN [Concomitant]
     Active Substance: ESTROGENS, CONJUGATED
     Indication: Menopause
     Dosage: 0.625 MGTAKE ONE TABLET ONCE A DAY
     Route: 048
  6. ALKAFIZZ [Concomitant]
     Indication: Product used for unknown indication
     Dosage: AS PRESCRIBED
     Route: 048
  7. BUTYLSCOPOLAMINE BROMIDE [Concomitant]
     Active Substance: BUTYLSCOPOLAMINE BROMIDE
     Indication: Product used for unknown indication
     Dosage: 10 MG 1-2 THREE TIMES A DAY BEFORE MEALS
     Route: 048
  8. LEVOTHYROXINE [Concomitant]
     Active Substance: LEVOTHYROXINE\LEVOTHYROXINE SODIUM
     Indication: Hypothyroidism
     Dosage: 100 MCG TAKE ONE TABLET ONCE A DAY BEFORE MEALS?NEW  FORMULATION
     Route: 048
  9. CANDACIDE [Concomitant]
     Indication: Product used for unknown indication
     Dosage: 100000 U TAKE 2ML FOUR TIMES A DAY
     Route: 048
  10. PRAMIPEXOLE DIHYDROCHLORIDE [Concomitant]
     Active Substance: PRAMIPEXOLE DIHYDROCHLORIDE
     Indication: Parkinson^s disease
     Dosage: 0.125 MG TAKE ONE TABLET IN THE EVENING
     Route: 048
  11. ALPRAZOLAM [Concomitant]
     Active Substance: ALPRAZOLAM
     Indication: Anxiety
     Dosage: 0.5 MG TAKE A TABLET OF AT NIGHT
     Route: 048
  12. DIBUCAINE HYDROCHLORIDE\PREDNISOLONE [Concomitant]
     Active Substance: DIBUCAINE HYDROCHLORIDE\PREDNISOLONE
     Indication: Product used for unknown indication
     Dosage: APPLY AS DIRECTED
     Route: 061
  13. PENTOXIFYLLINE [Concomitant]
     Active Substance: PENTOXIFYLLINE
     Indication: Myalgia
     Dosage: 400 MG TAKE ONE TABLET ONCE A DAY
     Route: 048
  14. INTEFLORA [Concomitant]
     Indication: Product used for unknown indication
     Dosage: 250 MG TAKE TWO CAPSULES ONCE A DAY
     Route: 048
  15. INFLUVAC [Suspect]
     Active Substance: INFLUENZA VIRUS VACCINE TRIVALENT TYPE A+B
     Indication: Product used for unknown indication
     Dosage: AS DIRECTED
     Route: 058
  16. OXYCODONE HYDROCHLORIDE [Concomitant]
     Active Substance: OXYCODONE HYDROCHLORIDE
     Indication: Anaesthesia
     Dosage: 10 MG TAKE ONE CAPSULE FOUR TO SIX HOURLY IF NEEDED
     Route: 048
  17. Quadriderm [Concomitant]
     Indication: Product used for unknown indication
     Dosage: APPLY TO AFFECTED TWICE DAILY
     Route: 061
  18. Cifran [Concomitant]
     Indication: Product used for unknown indication
     Dosage: 500 MG TAKE ONE TABLET TWICE A DAY AFTER EATING
     Route: 048
  19. METHYLPREDNISOLONE ACEPONATE [Concomitant]
     Active Substance: METHYLPREDNISOLONE ACEPONATE
     Indication: Product used for unknown indication
     Dosage: 1 MG APPLY TO SCALP IN THE EVENING, IF NECESSARY,AS DISCUSSED
  20. AZOR [Concomitant]
     Active Substance: AMLODIPINE BESYLATE\OLMESARTAN MEDOXOMIL
     Indication: Stress
     Dosage: 0.5 MG TAKE ONE TABLET TWICE A DAY IF NECESSARY
     Route: 048
  21. Spiractin [Concomitant]
     Indication: Hypertension
     Dosage: 25 MG TAKE ONE TABLET IN THE MORNING
     Route: 048
  22. AMILORIDE HYDROCHLORIDE\HYDROCHLOROTHIAZIDE [Concomitant]
     Active Substance: AMILORIDE HYDROCHLORIDE\HYDROCHLOROTHIAZIDE
     Indication: Hypertension
     Dosage: 5/50 MG TAKE ONE TABLET IN THE MORNING
     Route: 048
  23. Pantocid [Concomitant]
     Indication: Ulcer
     Dosage: 40 MG TAKE ONE TABLET IN THE MORNING
     Route: 048
  24. FUROSEMIDE [Concomitant]
     Active Substance: FUROSEMIDE
     Indication: Hypertension
     Dosage: 40 MG TAKE ONE TABLET ONCE A DAY
     Route: 048
  25. LORNOXICAM [Concomitant]
     Active Substance: LORNOXICAM
     Indication: Product used for unknown indication
     Dosage: 8 MG TAKE ONE TABLET TWICE A DAY
     Route: 048
  26. NALOXONE HYDROCHLORIDE\OXYCODONE HYDROCHLORIDE [Concomitant]
     Active Substance: NALOXONE HYDROCHLORIDE\OXYCODONE HYDROCHLORIDE
     Indication: Anaesthesia
     Dosage: 10/5 MG TAKE ONE TABLET TWICE A DAY
     Route: 048
  27. NALOXONE HYDROCHLORIDE\OXYCODONE HYDROCHLORIDE [Concomitant]
     Active Substance: NALOXONE HYDROCHLORIDE\OXYCODONE HYDROCHLORIDE
     Indication: Anaesthesia
     Dosage: 20/10 MG TAKE ONE TABLET TWICE A DAY
     Route: 048
  28. METOCLOPRAMIDE HYDROCHLORIDE [Concomitant]
     Active Substance: METOCLOPRAMIDE HYDROCHLORIDE
     Indication: Product used for unknown indication
     Dosage: 10 MG TAKE ONE TABLET EVERY EIGHT HOURS IF NEEDED
     Route: 048
  29. NIFEDIPINE [Concomitant]
     Active Substance: NIFEDIPINE
     Indication: Hypertension
     Dosage: 30 MG TAKE ONE TABLET ONCE A DAY AS DIRECTED?SR
     Route: 048
  30. AMITRIPTYLINE [Concomitant]
     Active Substance: AMITRIPTYLINE
     Indication: Migraine
     Dosage: 25 MG TAKE A TABLET OF AT NIGHT
     Route: 048

REACTIONS (1)
  - Death [Fatal]

NARRATIVE: CASE EVENT DATE: 20240911
